FAERS Safety Report 10936391 (Version 1)
Quarter: 2015Q1

REPORT INFORMATION
  Report Type: Spontaneous
  Country: US (occurrence: None)
  Receive Date: 20150212
  Receipt Date: 20150212
  Transmission Date: 20150721
  Serious: No
  Sender: FDA-Public Use
  Company Number: TPA2010A05250

PATIENT
  Age: 60 Year
  Sex: Male
  Weight: 92.99 kg

DRUGS (10)
  1. MSM (METHYLSULFONYLMMETHANE) [Concomitant]
  2. HERBAL PROSTATE COMBO (ALL OTHER THERAPEUTIC PRODUCT) [Concomitant]
  3. MULTI VITAMINS (ERGOCALCIFEROL, ASCORBIC ACID, FOLIC ACID, THIAMINE HYDROCHLORIDE, RETINOL, RIBOFLAVIN,  NICOTINAMIDE, PANTHENOL) [Concomitant]
  4. VITAMIN E [Concomitant]
     Active Substance: .ALPHA.-TOCOPHEROL
  5. LOSARTAN (LOSARTAN) [Concomitant]
     Active Substance: LOSARTAN
  6. ATENOLOL (ATENOLOL) [Concomitant]
     Active Substance: ATENOLOL
  7. ULORIC [Suspect]
     Active Substance: FEBUXOSTAT
     Indication: GOUT
     Route: 048
     Dates: start: 20100928
  8. INDOMETHACIN (INDOMETACIN) [Concomitant]
     Active Substance: INDOMETHACIN
  9. FISH LIVER OIL (ALL OTHER THERAPEUTIC PRODUCTS) [Concomitant]
  10. DIOVAN  HCT (HYDROCHLOROTHIAZIDE, VALSARTAN) [Concomitant]

REACTIONS (3)
  - Gait disturbance [None]
  - Gout [None]
  - Oedema peripheral [None]

NARRATIVE: CASE EVENT DATE: 2010
